FAERS Safety Report 10642560 (Version 1)
Quarter: 2014Q4

REPORT INFORMATION
  Report Type: Spontaneous
  Country: US (occurrence: None)
  Receive Date: 20141121
  Receipt Date: 20141121
  Transmission Date: 20150529
  Serious: No
  Sender: FDA-Public Use
  Company Number: 163-10004-14084502

PATIENT
  Age: 58 Year
  Sex: Female

DRUGS (1)
  1. OTEZLA [Suspect]
     Active Substance: APREMILAST
     Indication: PSORIATIC ARTHROPATHY
     Dosage: STARTER PACK
     Route: 048
     Dates: start: 20140816

REACTIONS (5)
  - Tension headache [None]
  - Nausea [None]
  - Diarrhoea [None]
  - Sluggishness [None]
  - Influenza like illness [None]

NARRATIVE: CASE EVENT DATE: 201408
